FAERS Safety Report 9090180 (Version 2)
Quarter: 2013Q1

REPORT INFORMATION
  Report Type: Spontaneous
  Country: US (occurrence: US)
  Receive Date: 20130131
  Receipt Date: 20130227
  Transmission Date: 20140127
  Serious: Yes (Hospitalization, Other)
  Sender: FDA-Public Use
  Company Number: US-JNJFOC-20130111403

PATIENT
  Age: 57 Year
  Sex: Male
  Weight: 83.92 kg

DRUGS (13)
  1. INVEGA SUSTENNA [Suspect]
     Indication: SCHIZOAFFECTIVE DISORDER
     Route: 030
     Dates: start: 20121211, end: 20121211
  2. INVEGA SUSTENNA [Suspect]
     Indication: SCHIZOAFFECTIVE DISORDER
     Route: 030
     Dates: start: 20130116
  3. INVEGA SUSTENNA [Suspect]
     Indication: SCHIZOAFFECTIVE DISORDER
     Route: 030
     Dates: start: 20121221
  4. RISPERDAL [Suspect]
     Indication: SCHIZOAFFECTIVE DISORDER
     Route: 048
     Dates: end: 20121211
  5. RISPERDAL [Suspect]
     Indication: SCHIZOAFFECTIVE DISORDER
     Route: 048
  6. RISPERDAL CONSTA [Suspect]
     Indication: PRODUCT USED FOR UNKNOWN INDICATION
     Route: 030
  7. HALDOL [Suspect]
     Indication: SCHIZOAFFECTIVE DISORDER
     Route: 048
  8. HALDOL [Suspect]
     Indication: SCHIZOAFFECTIVE DISORDER
     Route: 048
     Dates: end: 20121211
  9. LYRICA [Suspect]
     Indication: CONVULSION
     Route: 048
     Dates: end: 20130106
  10. UNSPECIFIED ANTIPSYCHOTICS [Suspect]
     Indication: PRODUCT USED FOR UNKNOWN INDICATION
     Route: 048
  11. DEPAKOTE [Concomitant]
     Indication: CONVULSION
     Route: 065
  12. COGENTIN [Concomitant]
     Indication: EXTRAPYRAMIDAL DISORDER
     Route: 065
  13. KEPPRA [Concomitant]
     Indication: CONVULSION
     Route: 065

REACTIONS (5)
  - Septic shock [Recovered/Resolved]
  - Neuroleptic malignant syndrome [Unknown]
  - Rhabdomyolysis [Recovered/Resolved]
  - Overdose [Unknown]
  - Urinary tract infection [Recovered/Resolved]
